FAERS Safety Report 5500006-5 (Version None)
Quarter: 2007Q4

REPORT INFORMATION
  Report Type: 
  Country: None (occurrence: None)
  Receive Date: 20071026
  Receipt Date: 20071016
  Transmission Date: 20080405
  Serious: Yes (Other)
  Sender: FDA-Public Use
  Company Number: US-PFIZER INC-2007088529

PATIENT
  Age: 71 Year
  Sex: Male

DRUGS (5)
  1. PREDNISONE [Suspect]
     Indication: RHEUMATOID ARTHRITIS
  2. LYRICA [Suspect]
     Indication: POST HERPETIC NEURALGIA
  3. ETANERCEPT [Suspect]
     Indication: RHEUMATOID ARTHRITIS
  4. VITAMIN CAP [Concomitant]
  5. ADVIL [Concomitant]

REACTIONS (9)
  - ABDOMINAL DISTENSION [None]
  - DRUG EFFECT DECREASED [None]
  - HEADACHE [None]
  - HERPES ZOSTER [None]
  - HERPES ZOSTER OPHTHALMIC [None]
  - SOMNOLENCE [None]
  - SWELLING [None]
  - WEIGHT DECREASED [None]
  - WEIGHT INCREASED [None]
